FAERS Safety Report 9644244 (Version 1)
Quarter: 2013Q4

REPORT INFORMATION
  Report Type: Spontaneous
  Country: US (occurrence: US)
  Receive Date: 20131024
  Receipt Date: 20131024
  Transmission Date: 20140711
  Serious: Yes (Other)
  Sender: FDA-Public Use
  Company Number: US-JNJFOC-20131009248

PATIENT
  Age: 40 Year
  Sex: Male
  Weight: 77.11 kg

DRUGS (3)
  1. BENADRYL ALLERGY ULTRATAB [Suspect]
     Indication: URTICARIA
     Dosage: WHEN NEEDED
     Route: 048
     Dates: start: 20131012
  2. BENADRYL TOPICAL EXTRA STRENGTH [Suspect]
     Indication: URTICARIA
     Dosage: WHEN NEEDED
     Route: 048
     Dates: start: 20131012
  3. HIGH BLOOD PRESSURE MEDICATION NOS [Concomitant]
     Indication: HYPERTENSION
     Route: 065

REACTIONS (3)
  - Loss of consciousness [Recovered/Resolved]
  - Wrong technique in drug usage process [Unknown]
  - Urinary incontinence [Recovered/Resolved]
